FAERS Safety Report 22294872 (Version 3)
Quarter: 2023Q2

REPORT INFORMATION
  Report Type: Report from Study
  Country: US (occurrence: US)
  Receive Date: 20230508
  Receipt Date: 20230605
  Transmission Date: 20230722
  Serious: Yes (Other)
  Sender: FDA-Public Use
  Company Number: US-TAKEDA-2023TUS033697

PATIENT
  Sex: Female

DRUGS (12)
  1. TEDUGLUTIDE [Suspect]
     Active Substance: TEDUGLUTIDE
     Indication: Short-bowel syndrome
     Dosage: 0.28 MILLILITER, QD
     Route: 058
     Dates: start: 20230316
  2. TEDUGLUTIDE [Suspect]
     Active Substance: TEDUGLUTIDE
     Indication: Short-bowel syndrome
     Dosage: 0.28 MILLILITER, QD
     Route: 058
     Dates: start: 20230316
  3. TEDUGLUTIDE [Suspect]
     Active Substance: TEDUGLUTIDE
     Indication: Short-bowel syndrome
     Dosage: 0.28 MILLILITER, QD
     Route: 058
     Dates: start: 20230316
  4. TEDUGLUTIDE [Suspect]
     Active Substance: TEDUGLUTIDE
     Indication: Short-bowel syndrome
     Dosage: 0.28 MILLILITER, QD
     Route: 058
     Dates: start: 20230316
  5. TEDUGLUTIDE [Suspect]
     Active Substance: TEDUGLUTIDE
     Indication: Malabsorption
     Dosage: 0.28 MILLILITER, QD
     Route: 058
     Dates: start: 20230317
  6. TEDUGLUTIDE [Suspect]
     Active Substance: TEDUGLUTIDE
     Indication: Malabsorption
     Dosage: 0.28 MILLILITER, QD
     Route: 058
     Dates: start: 20230317
  7. TEDUGLUTIDE [Suspect]
     Active Substance: TEDUGLUTIDE
     Indication: Malabsorption
     Dosage: 0.28 MILLILITER, QD
     Route: 058
     Dates: start: 20230317
  8. TEDUGLUTIDE [Suspect]
     Active Substance: TEDUGLUTIDE
     Indication: Malabsorption
     Dosage: 0.28 MILLILITER, QD
     Route: 058
     Dates: start: 20230317
  9. TEDUGLUTIDE [Suspect]
     Active Substance: TEDUGLUTIDE
     Dosage: 0.28 MILLILITER, QD
     Route: 058
  10. TEDUGLUTIDE [Suspect]
     Active Substance: TEDUGLUTIDE
     Dosage: 0.28 MILLILITER, QD
     Route: 058
  11. TEDUGLUTIDE [Suspect]
     Active Substance: TEDUGLUTIDE
     Dosage: 0.28 MILLILITER, QD
     Route: 058
  12. TEDUGLUTIDE [Suspect]
     Active Substance: TEDUGLUTIDE
     Dosage: 0.28 MILLILITER, QD
     Route: 058

REACTIONS (8)
  - Stoma closure [Recovered/Resolved]
  - Peripheral swelling [Unknown]
  - Restless legs syndrome [Unknown]
  - Dizziness [Unknown]
  - Injection site haemorrhage [Unknown]
  - Decreased appetite [Unknown]
  - Nausea [Unknown]
  - Abdominal pain [Unknown]
